FAERS Safety Report 7861168-8 (Version None)
Quarter: 2011Q4

REPORT INFORMATION
  Report Type: 
  Country: None (occurrence: None)
  Receive Date: 20111027
  Receipt Date: 20111017
  Transmission Date: 20120403
  Serious: No
  Sender: FDA-Public Use
  Company Number: US-PFIZER INC-2011249692

PATIENT
  Sex: Female

DRUGS (4)
  1. LOESTRIN 1.5/30 [Concomitant]
     Dosage: UNK
  2. RETIN-A [Concomitant]
     Dosage: 0.04 %, UNK
  3. RETIN-A [Concomitant]
     Dosage: 0.1 %, UNK
  4. POTASSIUM PENICILLIN G [Suspect]
     Dosage: UNK

REACTIONS (1)
  - DRUG HYPERSENSITIVITY [None]
